FAERS Safety Report 8676560 (Version 2)
Quarter: 2013Q4

REPORT INFORMATION
  Report Type: Spontaneous
  Country: US (occurrence: US)
  Receive Date: 20120722
  Receipt Date: 20131101
  Transmission Date: 20140711
  Serious: No
  Sender: FDA-Public Use
  Company Number: US-009507513-1207USA007206

PATIENT
  Sex: Male

DRUGS (1)
  1. MIRALAX [Suspect]
     Indication: CONSTIPATION
     Dosage: 2 DF, TID
     Route: 048
     Dates: start: 201201

REACTIONS (4)
  - Abnormal faeces [Unknown]
  - Drug administration error [Unknown]
  - Incorrect drug administration duration [Unknown]
  - Therapeutic product ineffective [Unknown]
